FAERS Safety Report 8726224 (Version 2)
Quarter: 2012Q4

REPORT INFORMATION
  Report Type: 
  Country: CH (occurrence: CH)
  Receive Date: 20120816
  Receipt Date: 20120914
  Transmission Date: 20130627
  Serious: No
  Sender: FDA-Public Use
  Company Number: CH-PFIZER INC-2012194694

PATIENT
  Age: 36 Year
  Sex: Male
  Weight: 129 kg

DRUGS (5)
  1. GENOTROPIN [Suspect]
     Dosage: 0.2 mg, 7/wk
     Route: 058
     Dates: start: 20070531
  2. ELTROXIN [Concomitant]
     Indication: BLOOD THYROID STIMULATING HORMONE DECREASED
     Dosage: UNK
  3. TESTOVIRON [Concomitant]
     Indication: BLOOD LUTEINISING HORMONE DECREASED
     Dosage: UNK
  4. TESTOVIRON [Concomitant]
     Indication: BLOOD FOLLICLE STIMULATING HORMONE DECREASED
  5. HYDROCORTISONE [Concomitant]
     Indication: BLOOD CORTICOTROPHIN DECREASED
     Dosage: UNK
     Dates: start: 20000701

REACTIONS (1)
  - Back pain [Recovered/Resolved]
